FAERS Safety Report 4970273-5 (Version None)
Quarter: 2006Q1

REPORT INFORMATION
  Report Type: 
  Country: None (occurrence: None)
  Receive Date: 20060330
  Receipt Date: 20060313
  Transmission Date: 20060701
  Serious: Yes (Other)
  Sender: FDA-Public Use
  Company Number: 200610352BVD

PATIENT
  Age: 50 Year
  Sex: Female
  Weight: 78 kg

DRUGS (7)
  1. PROLASTIN [Suspect]
     Indication: ALPHA-1 ANTI-TRYPSIN DEFICIENCY
     Dosage: 4000 MG, NI, INTRAVENOUS
     Route: 042
     Dates: start: 20041222
  2. PROLASTIN [Suspect]
     Indication: EMPHYSEMA
     Dosage: 4000 MG, NI, INTRAVENOUS
     Route: 042
     Dates: start: 20041222
  3. PROLASTIN [Suspect]
  4. MIFLONIDE [Concomitant]
  5. SPIRIVA [Concomitant]
  6. SALBU 200 [Concomitant]
  7. DECORTIN H [Concomitant]

REACTIONS (3)
  - ANAPHYLACTOID REACTION [None]
  - DEPRESSED LEVEL OF CONSCIOUSNESS [None]
  - SINUS ARREST [None]
